FAERS Safety Report 21447267 (Version 1)
Quarter: 2022Q4

REPORT INFORMATION
  Report Type: Spontaneous
  Country: CZ (occurrence: CZ)
  Receive Date: 20221012
  Receipt Date: 20221012
  Transmission Date: 20230113
  Serious: Yes (Other)
  Sender: FDA-Public Use
  Company Number: CZ-NOVARTISPH-NVSC2022CZ228360

PATIENT
  Sex: Female

DRUGS (1)
  1. CLINDAMYCIN [Suspect]
     Active Substance: CLINDAMYCIN
     Indication: Streptococcus test positive
     Dosage: UNK (ADMINISTERED 2 HOURS BEFORE DELIVERY)
     Route: 065

REACTIONS (3)
  - Premature delivery [Unknown]
  - Delivery [Unknown]
  - Maternal exposure during pregnancy [Unknown]
